FAERS Safety Report 18643755 (Version 1)
Quarter: 2020Q4

REPORT INFORMATION
  Report Type: Spontaneous
  Country: US (occurrence: US)
  Receive Date: 20201221
  Receipt Date: 20201221
  Transmission Date: 20210114
  Serious: Yes (Death)
  Sender: FDA-Public Use
  Company Number: None

PATIENT
  Age: 67 Year
  Sex: Female

DRUGS (9)
  1. ACETAMIN [Concomitant]
     Active Substance: ACETAMINOPHEN
  2. LORAZEPAM. [Concomitant]
     Active Substance: LORAZEPAM
  3. HYOSCYAMINE. [Concomitant]
     Active Substance: HYOSCYAMINE
  4. MORPHINE SUL [Concomitant]
     Active Substance: MORPHINE SULFATE
  5. ALBUTEROL. [Concomitant]
     Active Substance: ALBUTEROL
  6. DEXAMETHASON [Concomitant]
     Active Substance: DEXAMETHASONE
  7. PROMETHAZINE [Concomitant]
     Active Substance: PROMETHAZINE HYDROCHLORIDE
  8. ADEFOVIR DIPIVOXIL. [Suspect]
     Active Substance: ADEFOVIR DIPIVOXIL
     Indication: CHRONIC HEPATITIS B
     Route: 048
     Dates: start: 20180330
  9. BISACODYL. [Concomitant]
     Active Substance: BISACODYL

REACTIONS (1)
  - Death [None]
